FAERS Safety Report 17273525 (Version 1)
Quarter: 2020Q1

REPORT INFORMATION
  Report Type: Spontaneous
  Country: US (occurrence: US)
  Receive Date: 20200115
  Receipt Date: 20200115
  Transmission Date: 20200409
  Serious: No
  Sender: FDA-Public Use
  Company Number: None

PATIENT
  Age: 12 Year
  Sex: Male
  Weight: 54.9 kg

DRUGS (6)
  1. OSELTAMIVIR PHOSPHATE CAPSULES, USP [Suspect]
     Active Substance: OSELTAMIVIR PHOSPHATE
     Indication: INFLUENZA
     Dosage: ?          QUANTITY:1 CAPSULE(S);?
     Route: 048
     Dates: start: 20200114, end: 20200115
  2. ALLERGY SHOTS [Concomitant]
     Active Substance: UNSPECIFIED INGREDIENT
  3. VITAMIN C [Concomitant]
     Active Substance: ASCORBIC ACID
  4. PROBIOTICS FOR CHILDREN [Concomitant]
  5. TYLENOL [Concomitant]
     Active Substance: ACETAMINOPHEN
  6. ZINC. [Concomitant]
     Active Substance: ZINC

REACTIONS (8)
  - Hallucination [None]
  - Crying [None]
  - Headache [None]
  - Restlessness [None]
  - Sensory disturbance [None]
  - Confusional state [None]
  - Hyperacusis [None]
  - Influenza [None]

NARRATIVE: CASE EVENT DATE: 20200115
